FAERS Safety Report 9797396 (Version 2)
Quarter: 2014Q1

REPORT INFORMATION
  Report Type: Spontaneous
  Country: CA (occurrence: CA)
  Receive Date: 20140106
  Receipt Date: 20140106
  Transmission Date: 20141002
  Serious: Yes (Other)
  Sender: FDA-Public Use
  Company Number: CA-BEH-2013034391

PATIENT
  Age: 54 Year
  Sex: Female
  Weight: 58 kg

DRUGS (7)
  1. PRIVIGEN [Suspect]
     Dosage: 200 ML/HR
     Route: 042
     Dates: start: 20121220, end: 20121220
  2. PRIVIGEN [Suspect]
     Indication: DERMATOMYOSITIS
     Dosage: 200 ML/HR
     Route: 042
     Dates: start: 20121221, end: 20121221
  3. METHYLPREDNISOLONE [Concomitant]
     Dosage: X 3 DAYS
     Route: 042
  4. FOLIC ACID [Concomitant]
  5. VITAMIN D [Concomitant]
  6. SYNTHROID [Concomitant]
  7. METHOTREXATE [Concomitant]

REACTIONS (4)
  - Anaemia [Recovering/Resolving]
  - Haemolysis [Recovering/Resolving]
  - Anti-erythrocyte antibody positive [Unknown]
  - Haemoglobin decreased [Unknown]
